FAERS Safety Report 9896719 (Version 1)
Quarter: 2014Q1

REPORT INFORMATION
  Report Type: Report from Study
  Country: GB (occurrence: GB)
  Receive Date: 20140213
  Receipt Date: 20140213
  Transmission Date: 20141002
  Serious: Yes (Hospitalization)
  Sender: FDA-Public Use
  Company Number: GB-BRISTOL-MYERS SQUIBB COMPANY-20158994

PATIENT
  Age: 66 Year
  Sex: Female
  Weight: 64 kg

DRUGS (3)
  1. IPILIMUMAB [Suspect]
     Indication: SMALL CELL LUNG CANCER
     Dosage: RECENT DOSE 22JAN14
     Dates: start: 20131204, end: 20140122
  2. CARBOPLATIN [Suspect]
     Indication: SMALL CELL LUNG CANCER
     Dosage: RECENT DOSE 22JAN14
     Dates: start: 20131023, end: 20140122
  3. ETOPOSIDE [Suspect]
     Indication: SMALL CELL LUNG CANCER
     Dosage: RECENT DOSE 22JAN14
     Dates: start: 20131023, end: 20140122

REACTIONS (2)
  - Pneumonia [Unknown]
  - Thrombosis [Unknown]
